FAERS Safety Report 14847854 (Version 5)
Quarter: 2020Q4

REPORT INFORMATION
  Report Type: Spontaneous
  Country: US (occurrence: US)
  Receive Date: 20180504
  Receipt Date: 20201102
  Transmission Date: 20210113
  Serious: Yes (Congenital Anomaly, Other)
  Sender: FDA-Public Use
  Company Number: PHEH2018US016643

PATIENT
  Sex: Male

DRUGS (1)
  1. ZOFRAN [Suspect]
     Active Substance: ONDANSETRON HYDROCHLORIDE
     Indication: FOETAL EXPOSURE DURING PREGNANCY
     Dosage: MOTHER^S DOSE: 04 MG, QD
     Route: 064

REACTIONS (30)
  - Right ventricular dilatation [Unknown]
  - Foetal exposure during pregnancy [Unknown]
  - Strabismus [Unknown]
  - Pyrexia [Unknown]
  - Bronchitis [Unknown]
  - Pharyngitis [Unknown]
  - Weight decreased [Unknown]
  - Eustachian tube dysfunction [Unknown]
  - Oropharyngeal pain [Unknown]
  - Upper respiratory tract infection [Unknown]
  - Dysgraphia [Unknown]
  - Blindness unilateral [Unknown]
  - Injury [Unknown]
  - Nystagmus [Unknown]
  - Conjunctivitis allergic [Unknown]
  - Cough [Unknown]
  - Attention deficit hyperactivity disorder [Unknown]
  - Abdominal pain [Unknown]
  - Speech disorder [Unknown]
  - Atrial septal defect [Unknown]
  - Croup infectious [Unknown]
  - Language disorder [Unknown]
  - Failure to thrive [Unknown]
  - Fungal infection [Unknown]
  - Torticollis [Unknown]
  - Cardiomegaly [Unknown]
  - Reading disorder [Unknown]
  - Microphthalmos [Unknown]
  - Coxsackie viral infection [Unknown]
  - Dermatitis [Unknown]
